FAERS Safety Report 5754342-8 (Version None)
Quarter: 2008Q2

REPORT INFORMATION
  Report Type: 
  Country: None (occurrence: None)
  Receive Date: 20080530
  Receipt Date: 20080522
  Transmission Date: 20081010
  Serious: Yes (Other)
  Sender: FDA-Public Use
  Company Number: FR-PFIZER INC-2008003086

PATIENT
  Sex: Male
  Weight: 76 kg

DRUGS (2)
  1. VIAGRA [Suspect]
  2. AVLOCARDYL [Concomitant]
     Indication: TACHYCARDIA
     Route: 048

REACTIONS (5)
  - BLINDNESS [None]
  - DIZZINESS [None]
  - LOSS OF CONSCIOUSNESS [None]
  - MALAISE [None]
  - VISUAL DISTURBANCE [None]
